FAERS Safety Report 9897514 (Version 3)
Quarter: 2014Q4

REPORT INFORMATION
  Report Type: Spontaneous
  Country: US (occurrence: US)
  Receive Date: 20140214
  Receipt Date: 20141209
  Transmission Date: 20150529
  Serious: Yes (Hospitalization, Other)
  Sender: FDA-Public Use
  Company Number: US-BAYER-2014-023578

PATIENT
  Age: 24 Year
  Sex: Female
  Weight: 81.63 kg

DRUGS (6)
  1. ALEVE [Concomitant]
     Active Substance: NAPROXEN SODIUM
  2. TORADOL [Concomitant]
     Active Substance: KETOROLAC TROMETHAMINE
  3. UNASYN [Concomitant]
     Active Substance: AMPICILLIN SODIUM\SULBACTAM SODIUM
  4. ORTHO EVRA [Concomitant]
     Active Substance: ETHINYL ESTRADIOL\NORELGESTROMIN
  5. TYLENOL PM [DIPHENHYDRAMINE,PARACETAMOL] [Concomitant]
  6. MIRENA [Suspect]
     Active Substance: LEVONORGESTREL
     Indication: CONTRACEPTION
     Dosage: 20 MCG/24HR, CONT
     Route: 015
     Dates: start: 20040127, end: 20061106

REACTIONS (12)
  - Medical device discomfort [None]
  - Medical device pain [None]
  - Uterine perforation [None]
  - Injury [None]
  - Procedural pain [None]
  - Infertility [None]
  - Pain [None]
  - Depression [None]
  - Device failure [None]
  - Device dislocation [None]
  - Emotional distress [None]
  - Scar [None]

NARRATIVE: CASE EVENT DATE: 20061030
